FAERS Safety Report 4541855-X (Version None)
Quarter: 2004Q4

REPORT INFORMATION
  Report Type: 
  Country: None (occurrence: None)
  Receive Date: 20041230
  Receipt Date: 20041221
  Transmission Date: 20050328
  Serious: Yes (Other)
  Sender: FDA-Public Use
  Company Number: PHBS2004CA17172

PATIENT
  Sex: Male

DRUGS (3)
  1. TEGRETOL [Suspect]
     Route: 048
  2. CELEXA [Concomitant]
  3. LIPITOR [Concomitant]

REACTIONS (3)
  - ABDOMINAL PAIN [None]
  - COLITIS [None]
  - DIARRHOEA [None]
